FAERS Safety Report 7713405-8 (Version None)
Quarter: 2011Q3

REPORT INFORMATION
  Report Type: 
  Country: None (occurrence: None)
  Receive Date: 20110826
  Receipt Date: 20110816
  Transmission Date: 20111222
  Serious: Yes (Other)
  Sender: FDA-Public Use
  Company Number: US-JNJFOC-20110508589

PATIENT
  Sex: Female
  Weight: 70.76 kg

DRUGS (29)
  1. REMICADE [Suspect]
     Indication: RHEUMATOID ARTHRITIS
     Route: 042
     Dates: start: 20050101
  2. REMICADE [Suspect]
     Route: 042
     Dates: start: 20110608
  3. METHOTREXATE [Concomitant]
     Route: 065
     Dates: end: 20100901
  4. ONDANSETRON [Concomitant]
     Indication: NAUSEA
     Dates: end: 20100901
  5. PROGESTERONE [Concomitant]
     Dosage: 25-35 MG DAYS 16-33
  6. METHOTREXATE [Concomitant]
     Route: 065
     Dates: start: 20110501
  7. CALCIUM WITH VITAMIN D [Concomitant]
     Indication: MEDICAL DIET
  8. LOVAZA [Concomitant]
     Indication: MEDICAL DIET
  9. REMICADE [Suspect]
     Route: 042
     Dates: start: 20100615, end: 20101212
  10. FOLIC ACID [Concomitant]
     Indication: VITAMIN SUPPLEMENTATION
     Route: 048
  11. CYANOCOBALAMIN [Concomitant]
  12. EVENING PRIMROSE OIL [Concomitant]
     Indication: MEDICAL DIET
  13. NEURONTIN [Concomitant]
     Indication: MIGRAINE
  14. FLEXERIL [Concomitant]
  15. ASPIRIN [Concomitant]
  16. TREXAMET [Concomitant]
  17. METHOTREXATE [Concomitant]
     Indication: RHEUMATOID ARTHRITIS
     Route: 065
     Dates: start: 20050101
  18. REMICADE [Suspect]
     Route: 042
     Dates: start: 20110501
  19. MAGNESIUM [Concomitant]
  20. TOPIRAMATE [Concomitant]
     Indication: MIGRAINE
     Route: 048
  21. PROMETHAZINE [Concomitant]
     Indication: NAUSEA
     Route: 048
  22. DEXAMETHASONE [Concomitant]
     Dates: end: 20100901
  23. MAXALT [Concomitant]
  24. ZINC ACETATE [Concomitant]
     Route: 048
  25. VITAMIN D [Concomitant]
     Indication: MEDICAL DIET
  26. RIBOFLAVIN [Concomitant]
     Indication: MEDICAL DIET
  27. REMICADE [Suspect]
     Route: 042
     Dates: end: 20100615
  28. VALACYCLOVIR HYDROCHLORIDE [Concomitant]
     Route: 048
  29. CARISOPRODOL [Concomitant]

REACTIONS (9)
  - UPPER RESPIRATORY TRACT INFECTION [None]
  - DEEP VEIN THROMBOSIS [None]
  - OSTEOPENIA [None]
  - RHEUMATOID ARTHRITIS [None]
  - ONYCHOMYCOSIS [None]
  - INFECTED CYST [None]
  - STAPHYLOCOCCAL INFECTION [None]
  - OSTEOARTHRITIS [None]
  - CANDIDIASIS [None]
